FAERS Safety Report 7208150-1 (Version None)
Quarter: 2011Q1

REPORT INFORMATION
  Report Type: 
  Country: None (occurrence: None)
  Receive Date: 20110104
  Receipt Date: 20101230
  Transmission Date: 20110831
  Serious: Yes (Other)
  Sender: FDA-Public Use
  Company Number: DE-BRISTOL-MYERS SQUIBB COMPANY-15261589

PATIENT
  Age: 23 Year
  Sex: Female
  Weight: 35 kg

DRUGS (3)
  1. SUSTIVA [Suspect]
     Dosage: ALSO MAY04 UNTIL OCT06.
     Route: 048
     Dates: start: 20030101, end: 20040201
  2. VIRAMUNE [Suspect]
     Dates: start: 20040201, end: 20040501
  3. COMBIVIR [Suspect]
     Dosage: JAN03-FEB04,FEB04-MAY04,MAY04-OCT06 FORM:TABS
     Route: 048
     Dates: start: 20030101, end: 20061001

REACTIONS (4)
  - NERVOUS SYSTEM DISORDER [None]
  - OVARIAN CYST [None]
  - VIROLOGIC FAILURE [None]
  - MUSCLE SPASMS [None]
